FAERS Safety Report 19358385 (Version 1)
Quarter: 2021Q2

REPORT INFORMATION
  Report Type: Spontaneous
  Country: SE (occurrence: SE)
  Receive Date: 20210602
  Receipt Date: 20210602
  Transmission Date: 20210717
  Serious: Yes (Disabling)
  Sender: FDA-Public Use
  Company Number: SE-NOVOPROD-816172

PATIENT
  Age: 73 Year
  Sex: Female
  Weight: 73 kg

DRUGS (5)
  1. ALVEDON [Concomitant]
     Active Substance: ACETAMINOPHEN
     Dosage: 500 MG IF NEEDED
     Route: 048
     Dates: start: 20190415, end: 20210506
  2. IPREN [Concomitant]
     Active Substance: IBUPROFEN
     Dosage: 400 MG 1 TABLET PRN
     Route: 048
     Dates: start: 20190415, end: 20210325
  3. LOSARTAN. [Concomitant]
     Active Substance: LOSARTAN
     Dosage: 100 MG, QD
     Route: 048
     Dates: start: 20121017, end: 20210506
  4. VAGIFEM [Suspect]
     Active Substance: ESTRADIOL
     Indication: MUCOSAL ATROPHY
     Dosage: 20 ?G, QW
     Route: 067
     Dates: start: 20140317, end: 20210311
  5. SPIRONOLACTONE. [Suspect]
     Active Substance: SPIRONOLACTONE
     Indication: HYPERTENSION
     Dosage: 25 MG, QD
     Route: 048
     Dates: start: 20190411, end: 20210310

REACTIONS (2)
  - Blood pressure increased [Recovered/Resolved with Sequelae]
  - Product use in unapproved indication [Unknown]

NARRATIVE: CASE EVENT DATE: 20140317
